FAERS Safety Report 4754037-3 (Version None)
Quarter: 2005Q3

REPORT INFORMATION
  Report Type: 
  Country: None (occurrence: None)
  Receive Date: 20050826
  Receipt Date: 20050817
  Transmission Date: 20060218
  Serious: Yes (Death, Hospitalization, Disabling, Other)
  Sender: FDA-Public Use
  Company Number: 163-20785-04080380

PATIENT
  Age: 82 Year
  Sex: Male

DRUGS (10)
  1. THALOMID [Suspect]
     Indication: MULTIPLE MYELOMA
     Dosage: 200 MG, DAILY,  ORAL
     Route: 048
     Dates: start: 20040721, end: 20040901
  2. DECADRON [Concomitant]
  3. AMBIEN [Concomitant]
  4. LIPITOR [Concomitant]
  5. ZESTRIL [Concomitant]
  6. IMURAN [Concomitant]
  7. TOPROL (METOPROLOL) [Concomitant]
  8. ACETYLSALICYLIC ACID SRT [Concomitant]
  9. PROCRIT [Concomitant]
  10. ARANESP [Concomitant]

REACTIONS (3)
  - ANAEMIA [None]
  - DECREASED ACTIVITY [None]
  - LEUKAEMIA PLASMACYTIC [None]
